FAERS Safety Report 21924913 (Version 1)
Quarter: 2023Q1

REPORT INFORMATION
  Report Type: Spontaneous
  Country: US (occurrence: US)
  Receive Date: 20230130
  Receipt Date: 20230130
  Transmission Date: 20230418
  Serious: Yes (Other)
  Sender: FDA-Public Use
  Company Number: US-STRIDES ARCOLAB LIMITED-2023SP001260

PATIENT
  Age: 34 Year
  Sex: Female

DRUGS (4)
  1. ITRACONAZOLE [Suspect]
     Active Substance: ITRACONAZOLE
     Indication: Antifungal treatment
     Dosage: 200 MILLIGRAM, EVERY 12 HRS
     Route: 065
  2. ITRACONAZOLE [Suspect]
     Active Substance: ITRACONAZOLE
     Indication: Histoplasmosis
     Dosage: UNK,  INITIALLY THE DOSE OF ITRACONAZOLE WAS REDUCED AND THEN SWITCHED TO POSACONAZOLE
     Route: 065
  3. VANCOMYCIN [Concomitant]
     Active Substance: VANCOMYCIN
     Indication: Evidence based treatment
     Dosage: UNK
     Route: 065
  4. PIPERACILLIN SODIUM\TAZOBACTAM SODIUM [Concomitant]
     Active Substance: PIPERACILLIN SODIUM\TAZOBACTAM SODIUM
     Indication: Evidence based treatment
     Dosage: UNK
     Route: 065

REACTIONS (7)
  - Photophobia [Unknown]
  - Palpitations [Unknown]
  - Abdominal pain [Unknown]
  - Dyspepsia [Unknown]
  - Nausea [Unknown]
  - Chest pain [Unknown]
  - Tinnitus [Unknown]
